FAERS Safety Report 10602805 (Version 2)
Quarter: 2014Q4

REPORT INFORMATION
  Report Type: Spontaneous
  Country: GB (occurrence: GB)
  Receive Date: 20141124
  Receipt Date: 20141208
  Transmission Date: 20150529
  Serious: Yes (Hospitalization)
  Sender: FDA-Public Use
  Company Number: GB-TEVA-522777ISR

PATIENT
  Age: 75 Year
  Sex: Female

DRUGS (8)
  1. SPIRONOLACTONE. [Suspect]
     Active Substance: SPIRONOLACTONE
     Indication: LEFT VENTRICULAR HYPERTROPHY
     Dosage: 50 MILLIGRAM DAILY;
     Route: 048
     Dates: end: 20121205
  2. FUROSEMIDE. [Suspect]
     Active Substance: FUROSEMIDE
     Indication: LEFT VENTRICULAR HYPERTROPHY
     Dosage: 40 MILLIGRAM DAILY; TAKE IN THE MORNING.
     Route: 048
     Dates: end: 20121205
  3. RAMIPRIL. [Suspect]
     Active Substance: RAMIPRIL
     Indication: LEFT VENTRICULAR HYPERTROPHY
     Dosage: 2.5 MILLIGRAM DAILY;
     Route: 048
     Dates: end: 20121205
  4. BISOPROLOL FUMARATE. [Concomitant]
     Active Substance: BISOPROLOL FUMARATE
     Dosage: 5 MILLIGRAM DAILY;
  5. LANSOPRAZOLE. [Concomitant]
     Active Substance: LANSOPRAZOLE
     Dosage: 30 MILLIGRAM DAILY; TAKEN IN THE MORNING.
  6. WARFARIN SODIUM. [Concomitant]
     Active Substance: WARFARIN SODIUM
     Dosage: AS PER INTERNATIONAL NORMALISED RATIO.
  7. DIGOXIN. [Concomitant]
     Active Substance: DIGOXIN
     Dosage: 125 MICROGRAM DAILY; TAKEN IN MORNING
  8. CARBIMAZOLE [Concomitant]
     Active Substance: CARBIMAZOLE
     Dosage: 10 MILLIGRAM DAILY; TAKEN IN THE MORNING.

REACTIONS (3)
  - Dyspnoea [Recovered/Resolved]
  - Pleural effusion [Recovered/Resolved]
  - Acute kidney injury [Recovered/Resolved]

NARRATIVE: CASE EVENT DATE: 20121205
